FAERS Safety Report 4602672-5 (Version None)
Quarter: 2005Q1

REPORT INFORMATION
  Report Type: 
  Country: None (occurrence: None)
  Receive Date: 20050309
  Receipt Date: 20050308
  Transmission Date: 20050727
  Serious: Yes (Hospitalization)
  Sender: FDA-Public Use
  Company Number: PHBS2005BE03381

PATIENT
  Age: 68 Year
  Sex: Female

DRUGS (2)
  1. TRILEPTAL [Suspect]
     Indication: TRIGEMINAL NEURALGIA
     Dates: start: 19740101
  2. NEUROLEPTICS [Concomitant]

REACTIONS (13)
  - ASPIRATION [None]
  - BLOOD OSMOLARITY DECREASED [None]
  - BLOOD SODIUM DECREASED [None]
  - CEREBROVASCULAR ACCIDENT [None]
  - EPILEPSY [None]
  - GASTROINTESTINAL INFECTION [None]
  - HAEMODILUTION [None]
  - LOSS OF CONSCIOUSNESS [None]
  - MALAISE [None]
  - ORAL INFECTION [None]
  - RESPIRATORY DISORDER [None]
  - RESPIRATORY TRACT INFECTION [None]
  - SOMNOLENCE [None]
